FAERS Safety Report 7042493-X (Version None)
Quarter: 2010Q4

REPORT INFORMATION
  Report Type: 
  Country: None (occurrence: None)
  Receive Date: 20101013
  Receipt Date: 20100401
  Transmission Date: 20110411
  Serious: No
  Sender: FDA-Public Use
  Company Number: US-ASTRAZENECA-2010SE14413

PATIENT
  Age: 65 Year
  Sex: Female
  Weight: 56.7 kg

DRUGS (7)
  1. SYMBICORT [Suspect]
     Indication: ASTHMA
     Dosage: TWO PUFFS TWICE A DAY; TOTAL DAILY DOSAGE 640
     Route: 055
     Dates: start: 20100225
  2. ATENOLOL [Concomitant]
     Indication: HYPERTENSION
  3. OMEPRAZOLE [Concomitant]
     Indication: DYSPEPSIA
  4. FLUOXETINE [Concomitant]
     Indication: NERVOUSNESS
  5. HYDROCHLOROTHIAZIDE [Concomitant]
     Indication: FLUID RETENTION
  6. STRADIOL [Concomitant]
  7. ACYCLOVIR [Concomitant]
     Indication: HERPES VIRUS INFECTION

REACTIONS (4)
  - COUGH [None]
  - DYSPHAGIA [None]
  - OROPHARYNGEAL SPASM [None]
  - PHARYNGEAL OEDEMA [None]
